FAERS Safety Report 9176717 (Version 1)
Quarter: 2013Q1

REPORT INFORMATION
  Report Type: Spontaneous
  Country: US (occurrence: US)
  Receive Date: 20130321
  Receipt Date: 20130321
  Transmission Date: 20140127
  Serious: No
  Sender: FDA-Public Use
  Company Number: US-MYLANLABS-2012S1005270

PATIENT
  Sex: Female

DRUGS (2)
  1. SOTALOL HYDROCHLORIDE [Suspect]
     Indication: BLOOD PRESSURE
     Dates: start: 20111005
  2. AMLODIPINE [Suspect]

REACTIONS (1)
  - Abdominal discomfort [Not Recovered/Not Resolved]
